FAERS Safety Report 9648848 (Version 2)
Quarter: 2013Q4

REPORT INFORMATION
  Report Type: Spontaneous
  Country: US (occurrence: US)
  Receive Date: 20131028
  Receipt Date: 20131028
  Transmission Date: 20140711
  Serious: Yes (Other)
  Sender: FDA-Public Use
  Company Number: US-GILEAD-2013-0085042

PATIENT
  Sex: Female

DRUGS (4)
  1. LETAIRIS [Suspect]
     Indication: SCLERODERMA
     Dosage: 10 MG, QD
     Dates: start: 20130221
  2. LETAIRIS [Suspect]
     Indication: PULMONARY HYPERTENSION
  3. TYVASO [Concomitant]
  4. REVATIO [Concomitant]

REACTIONS (2)
  - Aphagia [Unknown]
  - Decreased appetite [Unknown]
